FAERS Safety Report 6177754-X (Version None)
Quarter: 2009Q2

REPORT INFORMATION
  Report Type: 
  Country: None (occurrence: None)
  Receive Date: 20090501
  Receipt Date: 20090501
  Transmission Date: 20091009
  Serious: Yes (Other)
  Sender: FDA-Public Use
  Company Number: None

PATIENT
  Sex: Male
  Weight: 6 kg

DRUGS (1)
  1. RX CHOICE FERROUS SULFATE IRON DISCREPANT -SEE PICTURES- HI-TECH PHARM [Suspect]

REACTIONS (2)
  - INTERCEPTED MEDICATION ERROR [None]
  - PRODUCT LABEL ISSUE [None]
